FAERS Safety Report 9742090 (Version 2)
Quarter: 2013Q4

REPORT INFORMATION
  Report Type: Spontaneous
  Country: US (occurrence: US)
  Receive Date: 20131210
  Receipt Date: 20131210
  Transmission Date: 20140711
  Serious: Yes (Hospitalization)
  Sender: FDA-Public Use
  Company Number: 2012SP004608

PATIENT
  Age: 62 Year
  Sex: Female
  Weight: 43.5 kg

DRUGS (18)
  1. FLUOROURACIL [Suspect]
     Indication: GASTRIC CANCER
     Route: 042
     Dates: start: 20110406, end: 20121017
  2. IRINOTECAN HCL [Suspect]
     Indication: GASTRIC CANCER
     Route: 042
     Dates: start: 20110406, end: 20111017
  3. SUNITINIB MALATE [Suspect]
     Indication: GASTRIC CANCER
     Route: 048
     Dates: start: 20110406, end: 20121030
  4. FOLINIC ACID [Suspect]
     Indication: GASTRIC CANCER
     Route: 042
     Dates: start: 20110406, end: 20121017
  5. ENOXAPARIN SODIUM [Concomitant]
  6. LOPERAMIDE HYDROCHLORIDE [Concomitant]
  7. AMLODIPINE [Concomitant]
  8. ATROPINE SULFATE [Concomitant]
  9. DIPHENOXYLATE HYDROCHLORIDE [Concomitant]
  10. DEXAMETHASONE [Concomitant]
  11. DOCUSATE SODIUM [Concomitant]
  12. LORAZEPAM [Concomitant]
  13. METOPROLOL [Concomitant]
  14. CLOPIDOGREL BISULFATE [Concomitant]
  15. ONDANSETRON HYDROCHLORIDE [Concomitant]
  16. GLYCERYL TRINITRATE [Concomitant]
  17. PROCHLORPERAZINE EDISYLATE [Concomitant]
  18. CYANOCOBALAMIN [Concomitant]

REACTIONS (1)
  - Dyspepsia [Recovered/Resolved]
